FAERS Safety Report 21034213 (Version 1)
Quarter: 2022Q3

REPORT INFORMATION
  Report Type: Spontaneous
  Country: US (occurrence: US)
  Receive Date: 20220701
  Receipt Date: 20220701
  Transmission Date: 20221026
  Serious: No
  Sender: FDA-Public Use
  Company Number: US-UNITED THERAPEUTICS-UNT-2022-011283

PATIENT
  Sex: Female

DRUGS (11)
  1. ORENITRAM [Suspect]
     Active Substance: TREPROSTINIL
     Indication: Pulmonary arterial hypertension
     Dosage: UNK
     Route: 048
     Dates: start: 20200116
  2. ORENITRAM [Suspect]
     Active Substance: TREPROSTINIL
     Dosage: UNK, TID
     Route: 048
     Dates: end: 202205
  3. ORENITRAM [Suspect]
     Active Substance: TREPROSTINIL
     Dosage: 1 TIME EVERY 0.33 DAYS
     Route: 048
  4. ORENITRAM [Suspect]
     Active Substance: TREPROSTINIL
     Indication: Pulmonary arterial hypertension
     Dosage: UNK
     Route: 048
  5. ORENITRAM [Suspect]
     Active Substance: TREPROSTINIL
     Indication: Pulmonary arterial hypertension
     Dosage: UNK
     Route: 048
  6. ORENITRAM [Suspect]
     Active Substance: TREPROSTINIL
     Indication: Pulmonary arterial hypertension
     Dosage: UNK
     Route: 048
  7. ORENITRAM [Suspect]
     Active Substance: TREPROSTINIL
     Indication: Pulmonary arterial hypertension
     Dosage: UNK
     Route: 048
  8. UPTRAVI [Concomitant]
     Active Substance: SELEXIPAG
     Indication: Pulmonary arterial hypertension
     Dosage: 4 DOSAGE FORM (1 TIMES EVERY 0.5 DAYS)
     Route: 048
     Dates: start: 20200416, end: 202205
  9. UPTRAVI [Concomitant]
     Active Substance: SELEXIPAG
     Dosage: 1 DOSAGE FORM, 1 TIMES EVERY 0.5 DAYS
     Route: 048
     Dates: start: 202205, end: 202205
  10. UPTRAVI [Concomitant]
     Active Substance: SELEXIPAG
     Dosage: 2 DOSAGE FORM, 1 TIMES EVERY 0.5 DAYS
     Route: 048
     Dates: start: 202205, end: 202205
  11. UPTRAVI [Concomitant]
     Active Substance: SELEXIPAG
     Dosage: 200 MCG, BID (1 IN 0.5 DAYS)
     Route: 048
     Dates: start: 20200416

REACTIONS (9)
  - Dyspnoea exertional [Unknown]
  - Fatigue [Not Recovered/Not Resolved]
  - Peripheral swelling [Unknown]
  - Joint swelling [Unknown]
  - Therapy cessation [Unknown]
  - Weight abnormal [Unknown]
  - Diarrhoea [Unknown]
  - Poor quality sleep [Unknown]
  - Dyspnoea [Recovering/Resolving]

NARRATIVE: CASE EVENT DATE: 20220101
